FAERS Safety Report 11924369 (Version 1)
Quarter: 2016Q1

REPORT INFORMATION
  Report Type: Spontaneous
  Country: US (occurrence: US)
  Receive Date: 20160118
  Receipt Date: 20160118
  Transmission Date: 20160526
  Serious: No
  Sender: FDA-Public Use
  Company Number: US-BAXALTA-2016BLT000082

PATIENT
  Age: 70 Year
  Sex: Female

DRUGS (5)
  1. EPINEPHRINE. [Suspect]
     Active Substance: EPINEPHRINE
     Indication: ASTHENIA
  2. EPINEPHRINE. [Suspect]
     Active Substance: EPINEPHRINE
     Indication: LOSS OF CONSCIOUSNESS
  3. HYQVIA [Suspect]
     Active Substance: HUMAN IMMUNOGLOBULIN G\HYALURONIDASE RECOMBINANT HUMAN
     Indication: IMMUNODEFICIENCY COMMON VARIABLE
     Dosage: UNK, 1X A MONTH, 4TH INFUSION
     Route: 058
     Dates: start: 20160104, end: 20160104
  4. EPINEPHRINE. [Suspect]
     Active Substance: EPINEPHRINE
     Indication: DIZZINESS
     Dosage: UNK
     Route: 058
     Dates: start: 20160104
  5. EPINEPHRINE. [Suspect]
     Active Substance: EPINEPHRINE
     Indication: NAUSEA

REACTIONS (5)
  - Syncope [Recovered/Resolved]
  - Dizziness [Recovered/Resolved]
  - Nausea [Recovered/Resolved]
  - Asthenia [Recovered/Resolved]
  - Vomiting [Recovered/Resolved]

NARRATIVE: CASE EVENT DATE: 20160104
